FAERS Safety Report 9055761 (Version 2)
Quarter: 2013Q1

REPORT INFORMATION
  Report Type: Report from Study
  Country: DE (occurrence: DE)
  Receive Date: 20130206
  Receipt Date: 20130220
  Transmission Date: 20140127
  Serious: Yes (Hospitalization)
  Sender: FDA-Public Use
  Company Number: DE-ROCHE-1178397

PATIENT
  Age: 62 Year
  Sex: Female
  Weight: 44 kg

DRUGS (6)
  1. BEVACIZUMAB [Suspect]
     Indication: OVARIAN CANCER
     Dosage: DATE OF LAST DOSE PRIOR TO SAE- 14/DEC/2012
     Route: 042
     Dates: start: 20121122, end: 20130108
  2. CARBOPLATIN [Suspect]
     Indication: OVARIAN CANCER
     Dosage: DATE OF LAST DOSE PRIOR TO SAE- 14/DEC/2012
     Route: 042
     Dates: start: 20121122, end: 20130108
  3. PACLITAXEL [Suspect]
     Indication: OVARIAN CANCER
     Dosage: DATE OF LAST DOSE PRIOR TO SAE- 14/DEC/2012
     Route: 042
     Dates: start: 20121122, end: 20130108
  4. LYRICA [Concomitant]
     Route: 048
  5. TRANSTEC [Concomitant]
     Route: 050
  6. CIPROBAY [Concomitant]
     Route: 048
     Dates: start: 20130108

REACTIONS (1)
  - Hydronephrosis [Recovered/Resolved]
